FAERS Safety Report 5606553-X (Version None)
Quarter: 2008Q1

REPORT INFORMATION
  Report Type: 
  Country: None (occurrence: None)
  Receive Date: 20080125
  Receipt Date: 20071203
  Transmission Date: 20080703
  Serious: Yes (Hospitalization)
  Sender: FDA-Public Use
  Company Number: PHO-2007-056

PATIENT
  Sex: Male

DRUGS (1)
  1. PHOTOFRIN [Suspect]
     Indication: OESOPHAGEAL CARCINOMA
     Dosage: 2 MG/KG, 1 DOSE, IV
     Route: 042
     Dates: start: 20071126

REACTIONS (2)
  - FALL [None]
  - LOWER LIMB FRACTURE [None]
